FAERS Safety Report 5122636-5 (Version None)
Quarter: 2006Q4

REPORT INFORMATION
  Report Type: 
  Country: None (occurrence: None)
  Receive Date: 20061004
  Receipt Date: 20060922
  Transmission Date: 20070319
  Serious: Yes (Death, Hospitalization)
  Sender: FDA-Public Use
  Company Number: 147955ISR

PATIENT
  Age: 63 Year
  Sex: Female

DRUGS (2)
  1. CARBAMAZEPINE [Suspect]
     Indication: POST-TRAUMATIC EPILEPSY
  2. VALPROIC ACID [Suspect]
     Indication: POST-TRAUMATIC EPILEPSY

REACTIONS (4)
  - ABDOMINAL DISTENSION [None]
  - ABDOMINAL PAIN LOWER [None]
  - HYPOTENSION [None]
  - MULTI-ORGAN FAILURE [None]
